FAERS Safety Report 8538009-9 (Version None)
Quarter: 2012Q3

REPORT INFORMATION
  Report Type: 
  Country: None (occurrence: None)
  Receive Date: 20120725
  Receipt Date: 20120723
  Transmission Date: 20120928
  Serious: Yes (Other)
  Sender: FDA-Public Use
  Company Number: PHHO2012SI010858

PATIENT
  Sex: Male
  Weight: 58 kg

DRUGS (4)
  1. ACETYLSALICYLIC ACID SRT [Suspect]
     Indication: THROMBOCYTOSIS
     Dosage: 100 MG, QD
     Route: 048
     Dates: start: 20120615
  2. BISOPROLOL FUMARATE [Concomitant]
     Indication: HYPERTENSION
     Dosage: 2.5 MG, QD
     Route: 048
     Dates: start: 20120415
  3. INC424 [Suspect]
     Dosage: 20 MG, BID
     Route: 048
     Dates: start: 20120706
  4. RAMIPRIL [Concomitant]
     Indication: HYPERTENSION
     Dosage: 5 MG, QD
     Route: 048
     Dates: start: 20020415

REACTIONS (1)
  - HAEMATURIA [None]
